FAERS Safety Report 19444103 (Version 2)
Quarter: 2021Q2

REPORT INFORMATION
  Report Type: Spontaneous
  Country: CA (occurrence: CA)
  Receive Date: 20210621
  Receipt Date: 20210630
  Transmission Date: 20210717
  Serious: No
  Sender: FDA-Public Use
  Company Number: CA-CELGENEUS-CAN-20210604381

PATIENT
  Sex: Male

DRUGS (1)
  1. REVLIMID [Suspect]
     Active Substance: LENALIDOMIDE
     Indication: PLASMA CELL MYELOMA
     Dosage: 15 MILLIGRAM
     Route: 048
     Dates: start: 20210505

REACTIONS (3)
  - Wrong technique in product usage process [Unknown]
  - Memory impairment [Unknown]
  - Hypophagia [Unknown]

NARRATIVE: CASE EVENT DATE: 2021
